FAERS Safety Report 20390463 (Version 1)
Quarter: 2022Q1

REPORT INFORMATION
  Report Type: Spontaneous
  Country: US (occurrence: US)
  Receive Date: 20220128
  Receipt Date: 20220128
  Transmission Date: 20220423
  Serious: No
  Sender: FDA-Public Use
  Company Number: US-SANOFI-00937538

PATIENT
  Sex: Male

DRUGS (2)
  1. ADMELOG [Suspect]
     Active Substance: INSULIN LISPRO
     Indication: Type 1 diabetes mellitus
     Dosage: UNK
  2. APIDRA [Concomitant]
     Active Substance: INSULIN GLULISINE

REACTIONS (2)
  - Dysarthria [Unknown]
  - Hyperglycaemia [Unknown]
